FAERS Safety Report 23781404 (Version 1)
Quarter: 2024Q2

REPORT INFORMATION
  Report Type: Spontaneous
  Country: US (occurrence: US)
  Receive Date: 20240425
  Receipt Date: 20240425
  Transmission Date: 20240716
  Serious: No
  Sender: FDA-Public Use
  Company Number: US-HALEON-2170409

PATIENT

DRUGS (1)
  1. BIOTENE FRESH MINT ORIGINAL (SODIUM FLUORIDE) [Suspect]
     Active Substance: SODIUM FLUORIDE
     Indication: Product used for unknown indication

REACTIONS (1)
  - Dental discomfort [Unknown]
